FAERS Safety Report 7589766-X (Version None)
Quarter: 2011Q3

REPORT INFORMATION
  Report Type: 
  Country: None (occurrence: None)
  Receive Date: 20110705
  Receipt Date: 20110625
  Transmission Date: 20111222
  Serious: Yes (Death)
  Sender: FDA-Public Use
  Company Number: US-ALEXION-A201100971

PATIENT
  Age: 25 Month
  Weight: 12 kg

DRUGS (1)
  1. SOLIRIS [Suspect]
     Indication: HAEMOLYTIC URAEMIC SYNDROME
     Route: 042

REACTIONS (3)
  - HAEMOLYTIC URAEMIC SYNDROME [None]
  - CONDITION AGGRAVATED [None]
  - BRAIN HERNIATION [None]
